FAERS Safety Report 18507411 (Version 1)
Quarter: 2020Q4

REPORT INFORMATION
  Report Type: Spontaneous
  Country: CA (occurrence: CA)
  Receive Date: 20201116
  Receipt Date: 20201116
  Transmission Date: 20210114
  Serious: Yes (Life-Threatening, Other)
  Sender: FDA-Public Use
  Company Number: None

PATIENT
  Sex: Female
  Weight: 54 kg

DRUGS (3)
  1. SPIRONOLACTONE. [Concomitant]
     Active Substance: SPIRONOLACTONE
  2. HYDRALAZINE [Suspect]
     Active Substance: HYDRALAZINE HYDROCHLORIDE
     Indication: HYPERTENSION
     Dates: start: 20201104, end: 20201104
  3. CANDESARTAN. [Concomitant]
     Active Substance: CANDESARTAN

REACTIONS (17)
  - Pallor [None]
  - Feeling abnormal [None]
  - Feeling of body temperature change [None]
  - Blood pressure increased [None]
  - Nightmare [None]
  - Conversion disorder [None]
  - Loss of consciousness [None]
  - Near death experience [None]
  - Heart rate increased [None]
  - Nausea [None]
  - Tongue disorder [None]
  - Hallucination [None]
  - Anal incontinence [None]
  - Tremor [None]
  - Tongue dry [None]
  - Deafness [None]
  - Palpitations [None]
